FAERS Safety Report 11743832 (Version 1)
Quarter: 2015Q4

REPORT INFORMATION
  Report Type: Spontaneous
  Country: JP (occurrence: JP)
  Receive Date: 20151116
  Receipt Date: 20151116
  Transmission Date: 20160304
  Serious: Yes (Death)
  Sender: FDA-Public Use
  Company Number: JP-MALLINCKRODT-T201505209

PATIENT
  Age: 77 Year
  Sex: Female

DRUGS (3)
  1. METHADONE [Suspect]
     Active Substance: METHADONE HYDROCHLORIDE
     Indication: CANCER PAIN
     Dosage: (5 MG DAILY DOSE)
     Route: 048
     Dates: start: 20150909, end: 20150915
  2. METHADONE [Suspect]
     Active Substance: METHADONE HYDROCHLORIDE
     Dosage: (7.5 MG DAILY DOSE)
     Route: 048
     Dates: start: 20150916, end: 20151007
  3. METHADONE [Suspect]
     Active Substance: METHADONE HYDROCHLORIDE
     Dosage: (5 MG DAILY DOSE)
     Route: 048
     Dates: start: 20151008, end: 20151021

REACTIONS (1)
  - Lymphoma [Fatal]
